FAERS Safety Report 19457830 (Version 2)
Quarter: 2021Q3

REPORT INFORMATION
  Report Type: Spontaneous
  Country: US (occurrence: US)
  Receive Date: 20210624
  Receipt Date: 20210813
  Transmission Date: 20211014
  Serious: No
  Sender: FDA-Public Use
  Company Number: US-PFIZER INC-2021603369

PATIENT
  Age: 11 Month
  Sex: Female
  Weight: 4.99 kg

DRUGS (6)
  1. GENOTROPIN [Suspect]
     Active Substance: SOMATROPIN
     Indication: SEPTO-OPTIC DYSPLASIA
     Dosage: 5MG, 0.2ML, ADMINISTERED ROTATING RIGHT AND LEFT THIGH AND RIGHT AND LEFT BUTT CHEEK
     Dates: start: 20210201
  2. GENOTROPIN [Suspect]
     Active Substance: SOMATROPIN
     Indication: GROWTH HORMONE DEFICIENCY
  3. LACTULOSE. [Concomitant]
     Active Substance: LACTULOSE
     Indication: DEFAECATION DISORDER
     Dosage: UNK
  4. GENOTROPIN [Suspect]
     Active Substance: SOMATROPIN
     Indication: BLINDNESS UNILATERAL
  5. GENOTROPIN [Suspect]
     Active Substance: SOMATROPIN
     Indication: OPTIC NERVE INJURY
  6. DIURIL [CHLOROTHIAZIDE SODIUM] [Concomitant]
     Indication: DIABETES INSIPIDUS
     Dosage: UNK

REACTIONS (3)
  - Device malfunction [Unknown]
  - Device leakage [Unknown]
  - Poor quality device used [Unknown]

NARRATIVE: CASE EVENT DATE: 20210520
